FAERS Safety Report 22855605 (Version 4)
Quarter: 2024Q2

REPORT INFORMATION
  Report Type: Spontaneous
  Country: CN (occurrence: CN)
  Receive Date: 20230823
  Receipt Date: 20240423
  Transmission Date: 20240715
  Serious: Yes (Other)
  Sender: FDA-Public Use
  Company Number: CN-PUMA BIOTECHNOLOGY, LTD.-2023-PUM-CN001375

PATIENT

DRUGS (4)
  1. NERLYNX [Suspect]
     Active Substance: NERATINIB
     Indication: Breast cancer
     Dosage: UNK
     Dates: start: 202305, end: 2023
  2. NERLYNX [Suspect]
     Active Substance: NERATINIB
     Dosage: 6 TABLETS (240MG),DAILY
     Route: 048
     Dates: start: 202310, end: 2023
  3. NERLYNX [Suspect]
     Active Substance: NERATINIB
     Dosage: 5 TABLETS (200MG),DAILY
     Route: 048
     Dates: start: 2023, end: 2023
  4. NERLYNX [Suspect]
     Active Substance: NERATINIB
     Dosage: 4 TABLETS (160MG),DAILY
     Route: 048
     Dates: start: 2023

REACTIONS (10)
  - Rectal ulcer [Unknown]
  - Large intestinal ulcer [Unknown]
  - Malaise [Unknown]
  - Hepatic function abnormal [Recovering/Resolving]
  - Nasopharyngitis [Recovering/Resolving]
  - Pyrexia [Recovering/Resolving]
  - Chapped lips [Recovering/Resolving]
  - Diarrhoea [Recovering/Resolving]
  - Mouth ulceration [Recovering/Resolving]
  - Nail disorder [Recovering/Resolving]

NARRATIVE: CASE EVENT DATE: 20230101
